FAERS Safety Report 16400483 (Version 4)
Quarter: 2022Q4

REPORT INFORMATION
  Report Type: Spontaneous
  Country: GB (occurrence: GB)
  Receive Date: 20190606
  Receipt Date: 20221130
  Transmission Date: 20230113
  Serious: Yes (Hospitalization, Other)
  Sender: FDA-Public Use
  Company Number: None

PATIENT
  Age: 64 Year
  Sex: Female
  Weight: 73 kg

DRUGS (19)
  1. SPORANOX [Interacting]
     Active Substance: ITRACONAZOLE
     Indication: Aspergillus infection
     Route: 048
     Dates: start: 20190329, end: 20190429
  2. SIMVASTATIN [Interacting]
     Active Substance: SIMVASTATIN
     Indication: Hypercholesterolaemia
     Route: 048
     Dates: start: 20150101, end: 20190429
  3. ALBUTEROL [Concomitant]
     Active Substance: ALBUTEROL
     Route: 048
  4. CITALOPRAM [Concomitant]
     Active Substance: CITALOPRAM HYDROBROMIDE
     Route: 065
  5. LEVOTHYROXINE [Concomitant]
     Active Substance: LEVOTHYROXINE
     Route: 065
  6. BECLOMETHASONE\FORMOTEROL [Concomitant]
     Active Substance: BECLOMETHASONE\FORMOTEROL
     Route: 065
  7. AMLODIPINE [Concomitant]
     Active Substance: AMLODIPINE BESYLATE
     Route: 065
  8. OMEPRAZOLE [Concomitant]
     Active Substance: OMEPRAZOLE
     Route: 065
  9. LORATADINE [Concomitant]
     Active Substance: LORATADINE
     Route: 065
  10. THEOPHYLLINE ANHYDROUS [Concomitant]
     Active Substance: THEOPHYLLINE ANHYDROUS
     Route: 065
  11. MONTELUKAST SODIUM [Concomitant]
     Active Substance: MONTELUKAST SODIUM
     Route: 065
  12. ENOXAPARIN [Concomitant]
     Active Substance: ENOXAPARIN
     Route: 048
  13. ACETAMINOPHEN [Concomitant]
     Active Substance: ACETAMINOPHEN
     Route: 065
  14. CLARITHROMYCIN [Concomitant]
     Active Substance: CLARITHROMYCIN
     Indication: Pneumonia
     Route: 065
  15. FLUTICASONE PROPIONATE\SALMETEROL XINAFOATE [Concomitant]
     Active Substance: FLUTICASONE PROPIONATE\SALMETEROL XINAFOATE
     Route: 065
  16. AMOXICILLIN\CLAVULANATE POTASSIUM [Concomitant]
     Active Substance: AMOXICILLIN\CLAVULANATE POTASSIUM
     Indication: Pneumonia
     Route: 042
  17. FLUTICASONE FUROATE [Concomitant]
     Active Substance: FLUTICASONE FUROATE
     Route: 065
  18. THEOPHYLLINE [Concomitant]
     Active Substance: THEOPHYLLINE
     Route: 065
  19. FLUTICASONE FUROATE\SALMETEROL XINAFOATE [Concomitant]
     Active Substance: FLUTICASONE FUROATE\SALMETEROL XINAFOATE
     Route: 065

REACTIONS (11)
  - Pneumonia [Unknown]
  - Liver function test abnormal [Recovering/Resolving]
  - Dyspnoea [Unknown]
  - Labelled drug-drug interaction medication error [Unknown]
  - Confusional state [Unknown]
  - Muscle spasms [Not Recovered/Not Resolved]
  - Chills [Unknown]
  - Contraindicated product administered [Unknown]
  - Contraindicated product prescribed [Unknown]
  - Rales [Unknown]
  - Pleural effusion [Unknown]

NARRATIVE: CASE EVENT DATE: 20190401
